FAERS Safety Report 4977547-2 (Version None)
Quarter: 2006Q2

REPORT INFORMATION
  Report Type: 
  Country: None (occurrence: None)
  Receive Date: 20060414
  Receipt Date: 20060404
  Transmission Date: 20061013
  Serious: Yes (Death, Life-Threatening)
  Sender: FDA-Public Use
  Company Number: 060406-0000319

PATIENT
  Age: 16 Day
  Sex: Female

DRUGS (6)
  1. INDOCIN [Suspect]
     Indication: PATENT DUCTUS ARTERIOSUS
     Dosage: IV
     Route: 042
  2. BERACTANT [Concomitant]
  3. AMIKACIN SULFATE [Concomitant]
  4. AMPICILLIN SODIUM [Concomitant]
  5. VANCOMYCIN [Concomitant]
  6. HYDROCHLORIDE [Concomitant]

REACTIONS (9)
  - ABDOMINAL DISTENSION [None]
  - BOWEL MOVEMENT IRREGULARITY [None]
  - C-REACTIVE PROTEIN INCREASED [None]
  - DISSEMINATED INTRAVASCULAR COAGULATION [None]
  - DYSPEPSIA [None]
  - FEEDING DISORDER NEONATAL [None]
  - NEONATAL DISORDER [None]
  - PLATELET COUNT DECREASED [None]
  - SMALL INTESTINAL PERFORATION [None]
